FAERS Safety Report 11468959 (Version 2)
Quarter: 2015Q3

REPORT INFORMATION
  Report Type: Spontaneous
  Country: US (occurrence: US)
  Receive Date: 20150908
  Receipt Date: 20150908
  Transmission Date: 20151125
  Serious: No
  Sender: FDA-Public Use
  Company Number: US-BAYER-2015-414579

PATIENT
  Sex: Female

DRUGS (2)
  1. MIRENA [Suspect]
     Active Substance: LEVONORGESTREL
     Indication: CONTRACEPTION
     Dosage: 20 ?G/D, CONT
     Dates: start: 20150715, end: 20150812
  2. MIRENA [Suspect]
     Active Substance: LEVONORGESTREL
     Indication: CONTRACEPTION
     Dosage: 20 ?G/D, CONT
     Dates: start: 20150812

REACTIONS (4)
  - Vaginal haemorrhage [None]
  - Device issue [None]
  - Device expulsion [None]
  - Unintentional medical device removal [None]

NARRATIVE: CASE EVENT DATE: 2015
